FAERS Safety Report 24213114 (Version 1)
Quarter: 2024Q3

REPORT INFORMATION
  Report Type: Spontaneous
  Country: FR (occurrence: FR)
  Receive Date: 20240815
  Receipt Date: 20240815
  Transmission Date: 20241017
  Serious: Yes (Hospitalization)
  Sender: BAXTER
  Company Number: None

PATIENT
  Age: 54 Year
  Sex: Male
  Weight: 64 kg

DRUGS (8)
  1. OLIMEL E [Suspect]
     Active Substance: AMINO ACIDS\DEXTROSE\ELECTROLYTES NOS\SOYBEAN OIL
     Indication: Parenteral nutrition
     Dosage: 1 L , ONCE A DAY, DURATION: 3 DAYS, OLIMEL N7E, EMULSION FOR INFUSION
     Route: 042
     Dates: start: 20240415, end: 20240418
  2. BACTRIM [Suspect]
     Active Substance: SULFAMETHOXAZOLE\TRIMETHOPRIM
     Indication: Renal abscess
     Dosage: 2 {DF} ONCE A DAY, DURATION: 3 DAYS, BACTRIM, SOLUTION FOR INJECTION FOR INFUSION
     Route: 042
     Dates: start: 20240412, end: 20240415
  3. DICLOFENAC [Suspect]
     Active Substance: DICLOFENAC
     Indication: Infusion site inflammation
     Dosage: UNK
     Route: 003
     Dates: start: 20240416
  4. KEYTRUDA [Concomitant]
     Active Substance: PEMBROLIZUMAB
     Dosage: UNK
     Route: 065
  5. CERNEVIT [Concomitant]
     Active Substance: VITAMINS
     Dosage: UNK
     Route: 065
  6. IRON\MINERALS\POTASSIUM IOD\SODIUM FLUORIDE\SODIUM MOLYBDATE\SODIUM SE [Concomitant]
     Active Substance: IRON\MINERALS\POTASSIUM IOD\SODIUM FLUORIDE\SODIUM MOLYBDATE\SODIUM SELENITE\ZINC
     Dosage: UNK
     Route: 065
  7. INLYTA [Concomitant]
     Active Substance: AXITINIB
     Dosage: UNK
     Route: 065
  8. BACTRIM [Concomitant]
     Active Substance: SULFAMETHOXAZOLE\TRIMETHOPRIM
     Indication: Renal abscess
     Dosage: 3 {DF} ONCE A DAY, DURATION: 3 DAYS, BACTRIM FORTE TABLET
     Route: 048
     Dates: start: 20240408, end: 20240411

REACTIONS (1)
  - Urticaria [Recovered/Resolved]

NARRATIVE: CASE EVENT DATE: 20240418
